FAERS Safety Report 6812108-1 (Version None)
Quarter: 2010Q3

REPORT INFORMATION
  Report Type: 
  Country: None (occurrence: None)
  Receive Date: 20100701
  Receipt Date: 20090717
  Transmission Date: 20110219
  Serious: No
  Sender: FDA-Public Use
  Company Number: US-ABBOTT-09P-163-0586695-00

PATIENT
  Sex: Male
  Weight: 74.456 kg

DRUGS (5)
  1. RITONAVIR [Suspect]
     Indication: HIV INFECTION
     Dates: start: 20050101
  2. REYATAZ [Concomitant]
     Indication: PRODUCT USED FOR UNKNOWN INDICATION
  3. TRUVADA [Concomitant]
     Indication: PRODUCT USED FOR UNKNOWN INDICATION
     Dosage: 200/300
  4. CYCLOVIR [Concomitant]
     Indication: PRODUCT USED FOR UNKNOWN INDICATION
  5. BACTRIM DS [Concomitant]
     Indication: PRODUCT USED FOR UNKNOWN INDICATION

REACTIONS (1)
  - IDIOPATHIC THROMBOCYTOPENIC PURPURA [None]
